FAERS Safety Report 24110124 (Version 4)
Quarter: 2024Q4

REPORT INFORMATION
  Report Type: Spontaneous
  Country: US (occurrence: US)
  Receive Date: 20240718
  Receipt Date: 20241225
  Transmission Date: 20250115
  Serious: Yes (Hospitalization, Other)
  Sender: SANOFI AVENTIS
  Company Number: US-SA-SAC20240712000693

PATIENT
  Age: 60 Year
  Sex: Male
  Weight: 97 kg

DRUGS (4)
  1. REZUROCK [Suspect]
     Active Substance: BELUMOSUDIL
     Indication: Graft versus host disease
     Dosage: 200MG QD
     Route: 048
     Dates: start: 20210908
  2. REZUROCK [Suspect]
     Active Substance: BELUMOSUDIL
     Dosage: 200 MG, BID
     Route: 048
     Dates: start: 20210908
  3. JAKAFI [Concomitant]
     Active Substance: RUXOLITINIB
     Indication: Graft versus host disease
     Dosage: 5 MG, BID
     Route: 048
     Dates: start: 20240214
  4. JAKAFI [Concomitant]
     Active Substance: RUXOLITINIB

REACTIONS (4)
  - Acute myeloid leukaemia [Not Recovered/Not Resolved]
  - Pulmonary embolism [Unknown]
  - Inappropriate schedule of product administration [Unknown]
  - Cellulitis [Unknown]

NARRATIVE: CASE EVENT DATE: 20210908
